FAERS Safety Report 21425023 (Version 1)
Quarter: 2022Q4

REPORT INFORMATION
  Report Type: Spontaneous
  Country: US (occurrence: US)
  Receive Date: 20221008
  Receipt Date: 20221008
  Transmission Date: 20230113
  Serious: No
  Sender: FDA-Public Use
  Company Number: US-NOVARTISTESTPH-NVSC2022US227278

PATIENT
  Sex: Female

DRUGS (2)
  1. TRIFLURIDINE [Suspect]
     Active Substance: TRIFLURIDINE
     Indication: Product used for unknown indication
     Dosage: 7.5 ML, LDP
     Route: 065
     Dates: start: 20221004
  2. CIPROFLOXACIN [Concomitant]
     Active Substance: CIPROFLOXACIN
     Indication: Product used for unknown indication
     Dosage: UNK
     Route: 065

REACTIONS (3)
  - Eye pain [Unknown]
  - Herpes zoster [Unknown]
  - Product storage error [Unknown]
